FAERS Safety Report 18064345 (Version 2)
Quarter: 2021Q2

REPORT INFORMATION
  Report Type: Spontaneous
  Country: US (occurrence: US)
  Receive Date: 20200724
  Receipt Date: 20210412
  Transmission Date: 20210717
  Serious: Yes (Other)
  Sender: FDA-Public Use
  Company Number: US-GLAXOSMITHKLINE-US2020140469

PATIENT
  Sex: Female

DRUGS (5)
  1. ZANTAC [Suspect]
     Active Substance: RANITIDINE HYDROCHLORIDE
     Indication: DYSPEPSIA
     Dosage: 100MG|OVER THE COUNTER,3 ? 4 TIMES A WEEK
     Route: 065
     Dates: start: 199901, end: 201912
  2. RANITIDINE. [Suspect]
     Active Substance: RANITIDINE
     Indication: DYSPEPSIA
     Dosage: 100MG|OVER THE COUNTER,3 ? 4 TIMES A WEEK
     Route: 065
     Dates: start: 199901, end: 201912
  3. ZANTAC [Suspect]
     Active Substance: RANITIDINE HYDROCHLORIDE
     Indication: DYSPEPSIA
     Dosage: 100MG|OVER THE COUNTER,3 ? 4 TIMES A WEEK
     Route: 065
     Dates: start: 199901, end: 201912
  4. ZANTAC [Suspect]
     Active Substance: RANITIDINE HYDROCHLORIDE
     Route: 065
     Dates: start: 19990115, end: 20191215
  5. RANITIDINE. [Suspect]
     Active Substance: RANITIDINE
     Indication: DYSPEPSIA
     Dosage: 100MG|OVER THE COUNTER,3 ? 4 TIMES A WEEK
     Route: 065
     Dates: start: 199901, end: 201912

REACTIONS (2)
  - Colorectal cancer [Unknown]
  - Colon cancer [Unknown]
